FAERS Safety Report 8131893-2 (Version None)
Quarter: 2012Q1

REPORT INFORMATION
  Report Type: 
  Country: None (occurrence: None)
  Receive Date: 20120208
  Receipt Date: 20120201
  Transmission Date: 20120608
  Serious: Yes (Disabling)
  Sender: FDA-Public Use
  Company Number: KAD201202-000128

PATIENT
  Age: 63 Year
  Sex: Female

DRUGS (5)
  1. PEG-INTRON [Suspect]
     Indication: PRODUCT USED FOR UNKNOWN INDICATION
  2. NEURONTIN [Suspect]
     Indication: PRODUCT USED FOR UNKNOWN INDICATION
     Dosage: 900 MG
  3. RIBAVIRIN [Suspect]
     Indication: PRODUCT USED FOR UNKNOWN INDICATION
  4. VICTRELIS [Suspect]
     Indication: HEPATITIS C
     Dosage: CAPSULE, 800 MG THREE TIMES DAILY, ORAL
     Route: 048
  5. HERBAL MEDICATION [Concomitant]

REACTIONS (2)
  - EPISTAXIS [None]
  - PAIN IN EXTREMITY [None]
